FAERS Safety Report 15838187 (Version 2)
Quarter: 2019Q1

REPORT INFORMATION
  Report Type: Spontaneous
  Country: US (occurrence: US)
  Receive Date: 20190117
  Receipt Date: 20190131
  Transmission Date: 20190417
  Serious: Yes (Hospitalization, Other)
  Sender: FDA-Public Use
  Company Number: US-SAOL THERAPEUTICS-2019SAO00017

PATIENT
  Age: 69 Year
  Sex: Male
  Weight: 57.05 kg

DRUGS (12)
  1. LIORESAL [Suspect]
     Active Substance: BACLOFEN
     Indication: MUSCLE SPASTICITY
     Dosage: 100 ?G, \DAY
     Route: 037
     Dates: start: 20181127, end: 20181129
  2. LIORESAL [Suspect]
     Active Substance: BACLOFEN
     Dosage: 1100 ?G, \DAY; LOG: 1099.38 ?G/DAY
     Route: 037
     Dates: start: 20181201, end: 20181202
  3. LIORESAL [Suspect]
     Active Substance: BACLOFEN
     Dosage: 750 ?G, \DAY; LOG: 749.8 ?G/DAY
     Route: 037
     Dates: start: 20181203, end: 20181205
  4. ORAL BACLOFEN [Concomitant]
     Active Substance: BACLOFEN
     Dosage: UNK
     Route: 048
     Dates: end: 20181130
  5. ORAL BACLOFEN [Concomitant]
     Active Substance: BACLOFEN
     Dosage: UNK
     Route: 048
     Dates: start: 20181205
  6. LIORESAL [Suspect]
     Active Substance: BACLOFEN
     Dosage: 935 ?G, \DAY
     Route: 037
     Dates: start: 20181207, end: 2018
  7. LIORESAL [Suspect]
     Active Substance: BACLOFEN
     Indication: MUSCLE SPASTICITY
     Dosage: 1000 ?G, \DAY; LOG: 999.7 ?G/DAY
     Route: 037
     Dates: start: 20181203, end: 20181203
  8. ATIVAN [Concomitant]
     Active Substance: LORAZEPAM
  9. LIORESAL [Suspect]
     Active Substance: BACLOFEN
     Dosage: 850 ?G, \DAY; LOG: 850.1 ?G/DAY
     Route: 037
     Dates: start: 20181205, end: 20181207
  10. LIORESAL [Suspect]
     Active Substance: BACLOFEN
     Dosage: 934 ?G, \DAY
     Route: 037
     Dates: start: 2018
  11. LIORESAL [Suspect]
     Active Substance: BACLOFEN
     Dosage: 997.7 ?G, \DAY
     Route: 037
     Dates: start: 20181129, end: 20181201
  12. LIORESAL [Suspect]
     Active Substance: BACLOFEN
     Dosage: 1200 ?G, \DAY; LOG: 1201.56 ?G/DAY
     Route: 037
     Dates: start: 20181202, end: 20181203

REACTIONS (6)
  - Device programming error [Recovered/Resolved]
  - Agitation [Recovered/Resolved]
  - Blood creatine phosphokinase increased [Recovered/Resolved]
  - Gait disturbance [Recovering/Resolving]
  - Drug withdrawal syndrome [Recovered/Resolved]
  - Delirium [Recovered/Resolved]

NARRATIVE: CASE EVENT DATE: 201812
